FAERS Safety Report 18235365 (Version 1)
Quarter: 2020Q3

REPORT INFORMATION
  Report Type: Spontaneous
  Country: US (occurrence: US)
  Receive Date: 20200905
  Receipt Date: 20200905
  Transmission Date: 20201103
  Serious: No
  Sender: FDA-Public Use
  Company Number: US-DRREDDYS-USA/USA/20/0126289

PATIENT
  Sex: Male

DRUGS (2)
  1. SEROQUEL [Suspect]
     Active Substance: QUETIAPINE FUMARATE
     Indication: PRODUCT USED FOR UNKNOWN INDICATION
     Route: 048
  2. DIVALPROEX SODIUM EXTENDED RELEASE TABLETS 250 MG [Suspect]
     Active Substance: DIVALPROEX SODIUM
     Indication: DEMENTIA ALZHEIMER^S TYPE
     Route: 048

REACTIONS (2)
  - Somnolence [Unknown]
  - Product use in unapproved indication [Unknown]
